FAERS Safety Report 4380615-X (Version None)
Quarter: 2004Q2

REPORT INFORMATION
  Report Type: 
  Country: None (occurrence: None)
  Receive Date: 20040618
  Receipt Date: 20040608
  Transmission Date: 20050107
  Serious: Yes (Life-Threatening, Hospitalization)
  Sender: FDA-Public Use
  Company Number: FRPFM-E-20040067

PATIENT
  Age: 58 Year
  Sex: Female

DRUGS (12)
  1. AMOXICILLIN AND CLAVULANATE POTASSIUM [Suspect]
     Indication: UPPER RESPIRATORY TRACT INFECTION
     Route: 048
     Dates: start: 20040512, end: 20040512
  2. KARDEGIC [Concomitant]
  3. NITROGLYCERIN [Concomitant]
  4. COAPROVEL [Concomitant]
  5. GLUCOPHAGE [Concomitant]
  6. SYMBICORT [Concomitant]
  7. GLUCOR [Concomitant]
  8. XANAX [Concomitant]
  9. DOLIPRANE [Concomitant]
  10. NOVONORM [Concomitant]
  11. VENTOLIN [Concomitant]
  12. DILTIAZEM HCL [Concomitant]

REACTIONS (7)
  - ANGIONEUROTIC OEDEMA [None]
  - DYSPHAGIA [None]
  - DYSPNOEA [None]
  - EYE SWELLING [None]
  - PARAESTHESIA [None]
  - SWOLLEN TONGUE [None]
  - WHEEZING [None]
